FAERS Safety Report 9158450 (Version 3)
Quarter: 2013Q3

REPORT INFORMATION
  Report Type: Spontaneous
  Country: FR (occurrence: FR)
  Receive Date: 20130312
  Receipt Date: 20130920
  Transmission Date: 20140515
  Serious: Yes (Life-Threatening)
  Sender: FDA-Public Use
  Company Number: FR-ROCHE-1197772

PATIENT
  Age: 30 Year
  Sex: Male

DRUGS (13)
  1. MABTHERA [Suspect]
     Indication: IMMUNE THROMBOCYTOPENIC PURPURA
     Route: 042
     Dates: start: 20120326, end: 201204
  2. IMUREL [Suspect]
     Indication: PRODUCT USED FOR UNKNOWN INDICATION
     Route: 065
     Dates: start: 2009, end: 2011
  3. SOLUPRED (FRANCE) [Suspect]
     Indication: PRODUCT USED FOR UNKNOWN INDICATION
     Route: 065
  4. ENDOXAN [Concomitant]
     Route: 065
     Dates: start: 1997
  5. PRIVIGEN [Concomitant]
     Route: 065
     Dates: end: 20120207
  6. RIVOTRIL [Concomitant]
     Route: 065
     Dates: start: 201301
  7. SPECIAFOLDINE [Concomitant]
  8. SOLUPRED (FRANCE) [Concomitant]
     Dosage: DAILY
     Route: 065
  9. DOLIPRANE [Concomitant]
  10. EUPANTOL [Concomitant]
     Route: 065
  11. KEPPRA [Concomitant]
     Route: 065
  12. ATARAX (FRANCE) [Concomitant]
  13. TAMIFLU [Concomitant]
     Route: 065

REACTIONS (1)
  - Acute disseminated encephalomyelitis [Recovering/Resolving]
